FAERS Safety Report 5857270-2 (Version None)
Quarter: 2008Q3

REPORT INFORMATION
  Report Type: 
  Country: None (occurrence: None)
  Receive Date: 20080822
  Receipt Date: 20080815
  Transmission Date: 20090109
  Serious: Yes (Other)
  Sender: FDA-Public Use
  Company Number: JPI-P-004391

PATIENT
  Age: 44 Year
  Sex: Female

DRUGS (8)
  1. XYREM [Suspect]
     Indication: INSOMNIA
     Dosage: 2 IN 1 D) ORAL; 9 GM (4.5 GM, 2 IN 1 D), ORAL
     Route: 048
     Dates: start: 20080422, end: 20080603
  2. XYREM [Suspect]
     Indication: NARCOLEPSY
     Dosage: 2 IN 1 D) ORAL; 9 GM (4.5 GM, 2 IN 1 D), ORAL
     Route: 048
     Dates: start: 20080422, end: 20080603
  3. XYREM [Suspect]
     Indication: SOMNOLENCE
     Dosage: 2 IN 1 D) ORAL; 9 GM (4.5 GM, 2 IN 1 D), ORAL
     Route: 048
     Dates: start: 20080422, end: 20080603
  4. XYREM [Suspect]
     Indication: INSOMNIA
     Dosage: 2 IN 1 D) ORAL; 9 GM (4.5 GM, 2 IN 1 D), ORAL
     Route: 048
     Dates: start: 20080604
  5. XYREM [Suspect]
     Indication: NARCOLEPSY
     Dosage: 2 IN 1 D) ORAL; 9 GM (4.5 GM, 2 IN 1 D), ORAL
     Route: 048
     Dates: start: 20080604
  6. XYREM [Suspect]
     Indication: SOMNOLENCE
     Dosage: 2 IN 1 D) ORAL; 9 GM (4.5 GM, 2 IN 1 D), ORAL
     Route: 048
     Dates: start: 20080604
  7. MODAFINIL (MODAFINIL) [Concomitant]
  8. CALCIUM SUPPLEMENT (CALCIUM) [Concomitant]

REACTIONS (1)
  - CONVULSION [None]
